FAERS Safety Report 9408071 (Version 1)
Quarter: 2013Q3

REPORT INFORMATION
  Report Type: Spontaneous
  Country: JP (occurrence: JP)
  Receive Date: 20130716
  Receipt Date: 20130716
  Transmission Date: 20140515
  Serious: Yes (Hospitalization)
  Sender: FDA-Public Use
  Company Number: TCI2013A03995

PATIENT
  Age: 85 Year
  Sex: Female

DRUGS (9)
  1. NESINA TABLETS 25 MG (ALOGLIPTIN BENZOATE) [Suspect]
     Indication: DIABETES MELLITUS
     Route: 048
     Dates: start: 20121207, end: 20130515
  2. WARFARIN (WARFARIN POTASSIUM) [Concomitant]
  3. OMEPRAL (OMEPRAZOLE) [Concomitant]
  4. HERBESSER R (DILTIAZEM HYDROCHLORIDE) (CAPSULE) (DILTIAZEM HYDROCHLORIDE) [Concomitant]
  5. LIPITOR (ATORVASTATIN CALCIUM) [Concomitant]
  6. MUCODYNE (CARBOCISTEINE) [Concomitant]
  7. ALLELOCK (OLOPATADINE HYDROCHLORIDE) [Concomitant]
  8. DIART (AZOSEMIDE) [Concomitant]
  9. ISOSORBIDE DINITRATE TAPE (ISOSORBIDE DINITRATE) [Concomitant]

REACTIONS (1)
  - Cholecystitis [None]
